FAERS Safety Report 9253306 (Version 2)
Quarter: 2013Q2

REPORT INFORMATION
  Report Type: Spontaneous
  Country: GB (occurrence: GB)
  Receive Date: 20130424
  Receipt Date: 20130617
  Transmission Date: 20140414
  Serious: Yes (Other)
  Sender: FDA-Public Use
  Company Number: GB-MYLANLABS-2013S1008195

PATIENT
  Age: 39 Year
  Sex: Female

DRUGS (5)
  1. BACLOFEN [Suspect]
     Indication: MUSCLE SPASTICITY
     Dates: start: 200809
  2. GILENYA [Suspect]
     Indication: RELAPSING-REMITTING MULTIPLE SCLEROSIS
     Route: 048
     Dates: start: 20121017
  3. PREGABALIN [Concomitant]
     Indication: NEURALGIA
     Route: 048
     Dates: start: 200908
  4. BETAFERON [Concomitant]
     Indication: MULTIPLE SCLEROSIS
  5. TYSABRI [Concomitant]
     Indication: MULTIPLE SCLEROSIS
     Dates: start: 201003

REACTIONS (4)
  - Lower respiratory tract infection [Recovered/Resolved]
  - Blood alkaline phosphatase increased [Recovered/Resolved]
  - Headache [Recovering/Resolving]
  - Liver function test abnormal [Recovered/Resolved]
